FAERS Safety Report 14954590 (Version 1)
Quarter: 2018Q2

REPORT INFORMATION
  Report Type: Spontaneous
  Country: FR (occurrence: FR)
  Receive Date: 20180530
  Receipt Date: 20180530
  Transmission Date: 20180711
  Serious: Yes (Hospitalization)
  Sender: FDA-Public Use
  Company Number: FR-ELI_LILLY_AND_COMPANY-FR201805009772

PATIENT
  Age: 62 Year
  Sex: Male

DRUGS (3)
  1. IBUPROFENE BIOGARAN [Suspect]
     Active Substance: IBUPROFEN
     Indication: ANALGESIC INTERVENTION SUPPORTIVE THERAPY
     Dosage: 400 MG, UNKNOWN
     Route: 048
     Dates: start: 20180413, end: 20180413
  2. FERVEX                             /00959901/ [Suspect]
     Active Substance: ACETAMINOPHEN\ASCORBIC ACID\PHENIRAMINE MALEATE
     Indication: NASOPHARYNGITIS
     Dosage: 2 DF, DAILY
     Route: 048
     Dates: start: 20180413, end: 20180413
  3. TADALAFIL [Suspect]
     Active Substance: TADALAFIL
     Indication: BENIGN PROSTATIC HYPERPLASIA
     Dosage: 5 MG, DAILY
     Route: 048
     Dates: start: 201712, end: 20180420

REACTIONS (1)
  - Drug reaction with eosinophilia and systemic symptoms [Recovering/Resolving]

NARRATIVE: CASE EVENT DATE: 20180420
